FAERS Safety Report 10944459 (Version 2)
Quarter: 2015Q2

REPORT INFORMATION
  Report Type: Spontaneous
  Country: US (occurrence: US)
  Receive Date: 20150323
  Receipt Date: 20150518
  Transmission Date: 20150821
  Serious: Yes (Other)
  Sender: FDA-Public Use
  Company Number: US-BEH-2013034530

PATIENT
  Age: 57 Year
  Sex: Male

DRUGS (4)
  1. INFLIXI-MAB [Suspect]
     Active Substance: INFLIXIMAB
     Indication: DEMYELINATING POLYNEUROPATHY
  2. IVIG [Suspect]
     Active Substance: HUMAN IMMUNOGLOBULIN G
     Indication: DEMYELINATING POLYNEUROPATHY
     Route: 042
  3. METHYLPREDNISOLONE. [Suspect]
     Active Substance: METHYLPREDNISOLONE
     Indication: DEMYELINATING POLYNEUROPATHY
  4. MONOCLONAL ANTIBODIES [Suspect]
     Active Substance: UNSPECIFIED INGREDIENT
     Indication: MALIGNANT MELANOMA

REACTIONS (3)
  - No therapeutic response [Recovered/Resolved]
  - Neuropathy peripheral [Recovered/Resolved]
  - Demyelinating polyneuropathy [Recovered/Resolved]
